FAERS Safety Report 6916556-0 (Version None)
Quarter: 2010Q3

REPORT INFORMATION
  Report Type: 
  Country: None (occurrence: None)
  Receive Date: 20100810
  Receipt Date: 20100731
  Transmission Date: 20110219
  Serious: Yes (Hospitalization)
  Sender: FDA-Public Use
  Company Number: NL-AMGEN-QUU425811

PATIENT
  Age: 58 Year
  Sex: Male

DRUGS (4)
  1. ENBREL [Suspect]
     Indication: PSORIASIS
     Route: 058
     Dates: start: 20080303, end: 20080401
  2. ENBREL [Suspect]
     Route: 058
     Dates: start: 20080101, end: 20080101
  3. ENBREL [Suspect]
     Route: 058
     Dates: start: 20090101, end: 20090901
  4. ENBREL [Suspect]
     Route: 058
     Dates: start: 20091101, end: 20100701

REACTIONS (9)
  - ARTHRALGIA [None]
  - CARDIAC DISORDER [None]
  - CERVICAL SPINAL STENOSIS [None]
  - HIP FRACTURE [None]
  - LUNG NEOPLASM MALIGNANT [None]
  - MUSCULOSKELETAL DISCOMFORT [None]
  - NEOPLASM MALIGNANT [None]
  - OESOPHAGEAL INFECTION [None]
  - OESOPHAGEAL VARICES HAEMORRHAGE [None]
